FAERS Safety Report 6179567-1 (Version None)
Quarter: 2009Q2

REPORT INFORMATION
  Report Type: 
  Country: None (occurrence: None)
  Receive Date: 20090501
  Receipt Date: 20090501
  Transmission Date: 20091009
  Serious: Yes (Life-Threatening)
  Sender: FDA-Public Use
  Company Number: None

PATIENT
  Age: 4 Year
  Sex: Male
  Weight: 18.1439 kg

DRUGS (1)
  1. BOTOX [Suspect]
     Indication: MUSCLE CONTRACTURE
     Dosage: IM THIS WAS THE THIRD TIME
     Route: 030

REACTIONS (11)
  - APPARENT DEATH [None]
  - BLINDNESS CORTICAL [None]
  - BRAIN INJURY [None]
  - ENCEPHALITIS [None]
  - HEART RATE DECREASED [None]
  - HYPOTONIA [None]
  - IMMUNE SYSTEM DISORDER [None]
  - NERVOUS SYSTEM DISORDER [None]
  - RESPIRATORY RATE DECREASED [None]
  - SOMNOLENCE [None]
  - UNRESPONSIVE TO STIMULI [None]
